FAERS Safety Report 10182082 (Version 2)
Quarter: 2015Q3

REPORT INFORMATION
  Report Type: Spontaneous
  Country: TR (occurrence: TR)
  Receive Date: 20140520
  Receipt Date: 20150709
  Transmission Date: 20151125
  Serious: Yes (Other)
  Sender: FDA-Public Use
  Company Number: PHHY2014TR057102

PATIENT
  Age: 23 Day
  Sex: Female

DRUGS (8)
  1. FUROSEMIDE. [Suspect]
     Active Substance: FUROSEMIDE
     Indication: HYPERCALCAEMIA
  2. CINACALCET [Concomitant]
     Active Substance: CINACALCET
     Dosage: 15 MG/M2 PER DAY
  3. CALCITONIN, SALMON [Suspect]
     Active Substance: CALCITONIN SALMON
     Indication: HYPERCALCAEMIA
     Dosage: 10 U/KG, Q6H
     Route: 058
  4. CINACALCET [Concomitant]
     Active Substance: CINACALCET
     Dosage: 30 MG/M2 PER DAY
  5. PAMIDRONATE [Suspect]
     Active Substance: PAMIDRONATE DISODIUM
     Indication: HYPERCALCAEMIA
     Dosage: 0.5 MG/KG PER DAY
     Route: 042
  6. CINACALCET [Concomitant]
     Active Substance: CINACALCET
     Dosage: 90 MG/M2 PER DAY
  7. CINACALCET [Concomitant]
     Active Substance: CINACALCET
     Indication: HYPERCALCAEMIA
     Dosage: 30 MG/M2 PER DAY
  8. CINACALCET [Concomitant]
     Active Substance: CINACALCET
     Dosage: 60 MG/M2 PER DAY

REACTIONS (2)
  - Blood parathyroid hormone increased [Recovered/Resolved]
  - Drug ineffective [Unknown]
